FAERS Safety Report 4386614-6 (Version None)
Quarter: 2004Q2

REPORT INFORMATION
  Report Type: 
  Country: None (occurrence: None)
  Receive Date: 20040629
  Receipt Date: 20040617
  Transmission Date: 20050107
  Serious: Yes (Hospitalization)
  Sender: FDA-Public Use
  Company Number: FR-GLAXOSMITHKLINE-B0336105A

PATIENT
  Age: 49 Year
  Sex: Male

DRUGS (1)
  1. VALACYCLOVIR HCL [Suspect]
     Route: 048

REACTIONS (4)
  - CEREBROVASCULAR ACCIDENT [None]
  - DRUG INEFFECTIVE [None]
  - SEXUAL DYSFUNCTION [None]
  - VERTIGO [None]
